FAERS Safety Report 20558349 (Version 2)
Quarter: 2022Q1

REPORT INFORMATION
  Report Type: Report from Study
  Country: MX (occurrence: MX)
  Receive Date: 20220307
  Receipt Date: 20220316
  Transmission Date: 20220423
  Serious: Yes (Other)
  Sender: FDA-Public Use
  Company Number: MX-BoehringerIngelheim-2021-BI-135363

PATIENT
  Age: 78 Year
  Sex: Female
  Weight: 92 kg

DRUGS (4)
  1. OFEV [Suspect]
     Active Substance: NINTEDANIB
     Indication: Idiopathic pulmonary fibrosis
     Dosage: 2
     Route: 048
     Dates: start: 20211021, end: 20211122
  2. OFEV [Suspect]
     Active Substance: NINTEDANIB
     Dosage: 2 CAPSULES AT FIRST AND THEN 1 CAPSULE
     Route: 048
     Dates: start: 20211119
  3. OFEV [Suspect]
     Active Substance: NINTEDANIB
     Dosage: 2 DIALY DOSES
     Route: 048
     Dates: start: 20211021, end: 20220115
  4. OFEV [Suspect]
     Active Substance: NINTEDANIB
     Route: 048
     Dates: start: 20211127

REACTIONS (26)
  - General physical health deterioration [Unknown]
  - Pyrexia [Recovered/Resolved]
  - Diarrhoea [Recovered/Resolved]
  - Diarrhoea [Recovered/Resolved]
  - Fatigue [Recovered/Resolved]
  - Abdominal pain upper [Recovered/Resolved]
  - Pyrexia [Recovered/Resolved]
  - Alopecia [Unknown]
  - Dizziness [Recovered/Resolved]
  - Epistaxis [Not Recovered/Not Resolved]
  - Fatigue [Unknown]
  - Diarrhoea [Not Recovered/Not Resolved]
  - Nausea [Not Recovered/Not Resolved]
  - Vomiting [Not Recovered/Not Resolved]
  - Decreased appetite [Recovered/Resolved]
  - Weight decreased [Not Recovered/Not Resolved]
  - Weight decreased [Unknown]
  - Haemorrhoids [Unknown]
  - Decreased appetite [Unknown]
  - Vomiting [Recovering/Resolving]
  - Nausea [Recovered/Resolved]
  - Contusion [Recovering/Resolving]
  - Epistaxis [Recovering/Resolving]
  - Haemorrhoids [Recovering/Resolving]
  - Thrombosis [Recovering/Resolving]
  - Depression [Unknown]

NARRATIVE: CASE EVENT DATE: 20211119
